FAERS Safety Report 7427370-4 (Version None)
Quarter: 2011Q2

REPORT INFORMATION
  Report Type: 
  Country: None (occurrence: None)
  Receive Date: 20110420
  Receipt Date: 20110412
  Transmission Date: 20111010
  Serious: Yes (Other)
  Sender: FDA-Public Use
  Company Number: GB-BAXTER-2011BH011672

PATIENT
  Age: 31 Year
  Sex: Female

DRUGS (10)
  1. ZOMETA [Concomitant]
     Indication: PRODUCT USED FOR UNKNOWN INDICATION
     Route: 065
  2. CYCLOPHOSPHAMIDE [Suspect]
     Indication: BREAST CANCER
     Route: 065
     Dates: end: 20090101
  3. EPIRUBICIN HYDROCHLORIDE [Suspect]
     Indication: BREAST CANCER
     Route: 065
     Dates: end: 20090101
  4. OXALIPLATIN [Concomitant]
     Indication: PRODUCT USED FOR UNKNOWN INDICATION
     Route: 065
  5. FLUOROURACIL [Suspect]
     Indication: BREAST CANCER
     Route: 065
     Dates: end: 20090101
  6. DOCETAXEL [Concomitant]
     Indication: PRODUCT USED FOR UNKNOWN INDICATION
     Route: 065
     Dates: start: 20090101, end: 20090101
  7. CAPECITABINE [Concomitant]
     Indication: PRODUCT USED FOR UNKNOWN INDICATION
     Route: 048
     Dates: start: 20100101, end: 20100501
  8. TAMOXIFEN [Suspect]
     Indication: BREAST CANCER
     Route: 048
     Dates: end: 20100101
  9. LETROZOLE [Concomitant]
     Indication: PRODUCT USED FOR UNKNOWN INDICATION
     Route: 065
  10. ZOLADEX [Suspect]
     Indication: BREAST CANCER
     Route: 058

REACTIONS (3)
  - METASTASES TO BONE [None]
  - METASTASES TO LIVER [None]
  - DISEASE PROGRESSION [None]
